FAERS Safety Report 14929327 (Version 2)
Quarter: 2018Q2

REPORT INFORMATION
  Report Type: Spontaneous
  Country: BR (occurrence: BR)
  Receive Date: 20180523
  Receipt Date: 20180601
  Transmission Date: 20180711
  Serious: Yes (Other)
  Sender: FDA-Public Use
  Company Number: BR-ALEXION PHARMACEUTICALS INC.-A201708346

PATIENT
  Sex: Male
  Weight: 14.4 kg

DRUGS (5)
  1. AEROLIN [Concomitant]
     Active Substance: ALBUTEROL
     Indication: PRODUCT USED FOR UNKNOWN INDICATION
     Dosage: UNK, AS NEEDED
     Route: 065
  2. SERETIDE [Concomitant]
     Active Substance: FLUTICASONE PROPIONATE\SALMETEROL XINAFOATE
     Indication: PRODUCT USED FOR UNKNOWN INDICATION
     Dosage: 2 PUUFS IN THE MORNING AND 1 PUFF AT NIGHT
     Route: 065
  3. STRENSIQ [Suspect]
     Active Substance: ASFOTASE ALFA
     Indication: HYPOPHOSPHATASIA
     Dosage: 0.75 ML, 3 TIMES PER WEEK
     Route: 058
     Dates: start: 201604
  4. FERROUS SULFATE. [Concomitant]
     Active Substance: FERROUS SULFATE
     Indication: PRODUCT USED FOR UNKNOWN INDICATION
     Dosage: UNK
     Route: 065
  5. STRENSIQ [Suspect]
     Active Substance: ASFOTASE ALFA
     Dosage: 0.6 ML, 3 TIMES PER WEEK
     Route: 065
     Dates: start: 201707

REACTIONS (2)
  - Craniosynostosis [Unknown]
  - Blood phosphorus increased [Unknown]
